FAERS Safety Report 8896567 (Version 1)
Quarter: 2012Q4

REPORT INFORMATION
  Report Type: Report from Study
  Country: ES (occurrence: ES)
  Receive Date: 20121108
  Receipt Date: 20121108
  Transmission Date: 20130627
  Serious: Yes (Other)
  Sender: FDA-Public Use
  Company Number: ES-CELGENEUS-144-21880-12103657

PATIENT
  Age: 68 Year
  Sex: Male
  Weight: 66.5 kg

DRUGS (33)
  1. REVLIMID [Suspect]
     Indication: MULTIPLE MYELOMA
     Route: 048
     Dates: start: 20110622, end: 20110705
  2. REVLIMID [Suspect]
     Route: 048
     Dates: start: 20110708, end: 20110712
  3. REVLIMID [Suspect]
     Route: 048
     Dates: start: 20120315, end: 20120911
  4. REVLIMID [Suspect]
     Route: 048
     Dates: start: 20110720, end: 20110906
  5. REVLIMID [Suspect]
     Route: 048
     Dates: start: 20110914, end: 20110927
  6. REVLIMID [Suspect]
     Route: 048
     Dates: start: 20110929, end: 20111004
  7. REVLIMID [Suspect]
     Route: 048
     Dates: start: 20111013, end: 20120124
  8. REVLIMID [Suspect]
     Route: 048
     Dates: start: 20120201, end: 20120214
  9. CARFILZOMIB [Suspect]
     Indication: MULTIPLE MYELOMA
     Dosage: 35 Milligram
     Route: 065
     Dates: start: 20110622, end: 20110623
  10. CARFILZOMIB [Suspect]
     Dosage: 47 Milligram
     Route: 065
     Dates: start: 20110629, end: 20110630
  11. CARFILZOMIB [Suspect]
     Route: 065
     Dates: start: 20110720, end: 20110901
  12. CARFILZOMIB [Suspect]
     Route: 065
     Dates: start: 20120201, end: 20120209
  13. CARFILZOMIB [Suspect]
     Route: 065
     Dates: start: 20120315, end: 20120531
  14. CARFILZOMIB [Suspect]
     Route: 065
     Dates: start: 20110914, end: 20110915
  15. CARFILZOMIB [Suspect]
     Route: 065
     Dates: start: 20110921, end: 20110922
  16. CARFILZOMIB [Suspect]
     Route: 065
     Dates: start: 20111013, end: 20120119
  17. CARFILZOMIB [Suspect]
     Route: 065
     Dates: start: 20120613, end: 20121004
  18. CARFILZOMIB [Suspect]
     Route: 065
     Dates: start: 20121017, end: 20121018
  19. DEXAMETHASONE [Suspect]
     Indication: MULTIPLE MYELOMA
     Route: 065
     Dates: start: 20110622, end: 20120912
  20. DEXAMETHASONE [Suspect]
     Route: 065
     Dates: start: 20110622, end: 20120124
  21. ACICLOVIR [Concomitant]
     Indication: ANTIVIRAL PROPHYLAXIS
     Dosage: 400 Milligram
     Route: 048
     Dates: start: 2010
  22. ALENDRONIC ACID [Concomitant]
     Indication: OSTEOPOROSIS
     Route: 048
     Dates: start: 2000
  23. CALCIUM [Concomitant]
     Indication: PROPHYLAXIS
     Route: 048
     Dates: start: 20110728
  24. CLEXANE [Concomitant]
     Indication: ANTICOAGULANT THERAPY
     Route: 058
     Dates: start: 20110621
  25. DEFLAZACORT [Concomitant]
     Indication: VASCULITIS
     Route: 048
     Dates: start: 1995
  26. DOXAZOSINE [Concomitant]
     Indication: BENIGN PROSTATIC HYPERTROPHY
     Route: 048
  27. DULOXETINE [Concomitant]
     Indication: DEPRESSION
     Route: 048
     Dates: start: 20120308
  28. DUTASTERIDE [Concomitant]
     Indication: BENIGN PROSTATIC HYPERTROPHY
     Route: 048
  29. PARACETAMOL [Concomitant]
     Indication: NEUROPATHY
     Route: 048
     Dates: start: 2011
  30. PROSTUROL [Concomitant]
     Indication: BENIGN PROSTATIC HYPERTROPHY
     Route: 048
  31. TANAKENE [Concomitant]
     Indication: VASCULITIS
     Route: 048
  32. TRAMADOL [Concomitant]
     Indication: NEUROPATHY
     Route: 048
     Dates: start: 2011
  33. VALIUM [Concomitant]
     Indication: PROPHYLAXIS
     Route: 048

REACTIONS (1)
  - Myelodysplastic syndrome [Not Recovered/Not Resolved]
